FAERS Safety Report 7365529-5 (Version None)
Quarter: 2011Q1

REPORT INFORMATION
  Report Type: 
  Country: None (occurrence: None)
  Receive Date: 20110316
  Receipt Date: 20110316
  Transmission Date: 20110831
  Serious: Yes (Life-Threatening, Other)
  Sender: FDA-Public Use
  Company Number: None

PATIENT
  Age: 27 Year
  Sex: Female
  Weight: 61.2356 kg

DRUGS (2)
  1. METRONIDAZOLE [Suspect]
     Indication: VAGINITIS BACTERIAL
     Dosage: 500MG TAB 1 DAILY FOR 7 DAYS PO
     Route: 048
     Dates: start: 20110203, end: 20110207
  2. CITALOPRAM GENERIC FOR 10MG AMNEAL [Suspect]
     Indication: ANXIETY
     Dosage: 10MG TAB 1 DAILY PO
     Route: 048
     Dates: start: 20110207, end: 20110207

REACTIONS (19)
  - MYDRIASIS [None]
  - FEELING HOT [None]
  - PALPITATIONS [None]
  - INSOMNIA [None]
  - PANIC ATTACK [None]
  - FLUSHING [None]
  - TREMOR [None]
  - BLEPHAROSPASM [None]
  - NAUSEA [None]
  - ANXIETY [None]
  - ABDOMINAL PAIN [None]
  - DYSGEUSIA [None]
  - DIZZINESS [None]
  - TETANY [None]
  - BLOOD PRESSURE INCREASED [None]
  - PAROSMIA [None]
  - COORDINATION ABNORMAL [None]
  - DRUG INTERACTION [None]
  - HEADACHE [None]
